FAERS Safety Report 8298931-8 (Version None)
Quarter: 2012Q2

REPORT INFORMATION
  Report Type: 
  Country: None (occurrence: None)
  Receive Date: 20120419
  Receipt Date: 20120417
  Transmission Date: 20120825
  Serious: No
  Sender: FDA-Public Use
  Company Number: US-PFIZER INC-2012095505

PATIENT
  Sex: Male
  Weight: 74.83 kg

DRUGS (5)
  1. PREDNISONE [Concomitant]
     Indication: ASTHMA
     Dosage: 10 MG, DAILY
  2. LYRICA [Suspect]
     Indication: HERPES ZOSTER
     Dosage: 75 MG, DAILY
     Route: 048
     Dates: start: 20120101
  3. LYRICA [Suspect]
     Dosage: 150 MG, DAILY
     Route: 048
  4. COMBIVENT [Concomitant]
     Indication: ASTHMA
     Dosage: UNK, DAILY
  5. LYRICA [Suspect]
     Dosage: 225 MG, DAILY
     Route: 048
     Dates: end: 20120416

REACTIONS (5)
  - MUSCLE SPASMS [None]
  - PAIN [None]
  - DIZZINESS [None]
  - MUSCLE TIGHTNESS [None]
  - BALANCE DISORDER [None]
